FAERS Safety Report 9984737 (Version 1)
Quarter: 2014Q1

REPORT INFORMATION
  Report Type: Report from Study
  Country: US (occurrence: US)
  Receive Date: 20140304
  Receipt Date: 20140304
  Transmission Date: 20141002
  Serious: No
  Sender: FDA-Public Use
  Company Number: US-ABBVIE-13P-163-1076861-00

PATIENT
  Age: 37 Year
  Sex: Male

DRUGS (2)
  1. HUMIRA [Suspect]
     Indication: PSORIASIS
     Dates: start: 201112, end: 201204
  2. HUMIRA [Suspect]
     Dates: start: 201204, end: 201212

REACTIONS (2)
  - Mycobacterium tuberculosis complex test positive [Unknown]
  - Psoriasis [Not Recovered/Not Resolved]
